FAERS Safety Report 6294745-9 (Version None)
Quarter: 2009Q3

REPORT INFORMATION
  Report Type: 
  Country: None (occurrence: None)
  Receive Date: 20090803
  Receipt Date: 20090729
  Transmission Date: 20100115
  Serious: Yes (Life-Threatening)
  Sender: FDA-Public Use
  Company Number: FR-ASTRAZENECA-2009SE06216

PATIENT
  Age: 25387 Day
  Sex: Female

DRUGS (6)
  1. DIPRIVAN [Suspect]
     Indication: INDUCTION OF ANAESTHESIA
     Route: 042
     Dates: start: 20090624, end: 20090624
  2. CELOCURIN [Suspect]
     Indication: INDUCTION OF ANAESTHESIA
     Route: 042
     Dates: start: 20090624, end: 20090624
  3. SUFENTANIL MERCK [Suspect]
     Indication: INDUCTION OF ANAESTHESIA
     Route: 042
     Dates: start: 20090624, end: 20090624
  4. EUPRESSYL [Concomitant]
  5. DILTIAZEM [Concomitant]
  6. COOLMETEC [Concomitant]

REACTIONS (3)
  - ALLERGY TEST POSITIVE [None]
  - ANAPHYLACTIC SHOCK [None]
  - BRONCHOSPASM [None]
